FAERS Safety Report 6545627-6 (Version None)
Quarter: 2010Q1

REPORT INFORMATION
  Report Type: 
  Country: None (occurrence: None)
  Receive Date: 20100119
  Receipt Date: 20100106
  Transmission Date: 20100710
  Serious: Yes (Hospitalization, Other)
  Sender: FDA-Public Use
  Company Number: PAR_03304_2010

PATIENT
  Age: 37 Year
  Sex: Female

DRUGS (10)
  1. ONDANSETRON [Suspect]
     Indication: NAUSEA
     Dosage: 4 MG 1X, INTRAVENOUS (NOT OTHERWISE SPECIFIED)
     Route: 042
  2. ONDANSETRON [Suspect]
     Indication: NAUSEA
     Dosage: 4 MG 1X, INTRAVENOUS (NOT OTHERWISE SPECIFIED)
     Route: 042
  3. LIDOCAINE [Concomitant]
  4. THIOPENTAL SODIUM [Concomitant]
  5. SUCCINYLCHOLINE CHLORIDE [Concomitant]
  6. FENTANYL [Concomitant]
  7. SEVOFLURANE [Concomitant]
  8. NITROUS OXIDE [Concomitant]
  9. OXYGEN [Concomitant]
  10. METOCLOPRAMIDE [Concomitant]

REACTIONS (6)
  - DRUG TOXICITY [None]
  - EXTRAPYRAMIDAL DISORDER [None]
  - NEUROLOGICAL SYMPTOM [None]
  - PERITONEAL HAEMORRHAGE [None]
  - SOMATOFORM DISORDER [None]
  - SOMNOLENCE [None]
